FAERS Safety Report 14783332 (Version 1)
Quarter: 2018Q2

REPORT INFORMATION
  Report Type: Spontaneous
  Country: US (occurrence: US)
  Receive Date: 20180420
  Receipt Date: 20180420
  Transmission Date: 20180711
  Serious: Yes (Hospitalization, Other)
  Sender: FDA-Public Use
  Company Number: US-WEST-WARD PHARMACEUTICALS CORP.-US-H14001-18-03027

PATIENT
  Age: 61 Year
  Sex: Female

DRUGS (3)
  1. DESIPRAMINE [Suspect]
     Active Substance: DESIPRAMINE
     Indication: SCHIZOAFFECTIVE DISORDER
     Route: 065
  2. LITHIUM. [Suspect]
     Active Substance: LITHIUM
     Indication: SCHIZOAFFECTIVE DISORDER
     Route: 065
  3. QUETIAPINE. [Suspect]
     Active Substance: QUETIAPINE
     Indication: SCHIZOAFFECTIVE DISORDER
     Route: 065

REACTIONS (4)
  - Ileus [Unknown]
  - Intestinal obstruction [Recovered/Resolved]
  - Urinary retention [Unknown]
  - Acute kidney injury [Recovered/Resolved]
